FAERS Safety Report 8890830 (Version 2)
Quarter: 2012Q4

REPORT INFORMATION
  Report Type: 
  Country: US (occurrence: US)
  Receive Date: 20121106
  Receipt Date: 20121114
  Transmission Date: 20130627
  Serious: Yes (Other)
  Sender: FDA-Public Use
  Company Number: CHPA2012US022814

PATIENT
  Sex: Female

DRUGS (4)
  1. VOLTAREN GEL [Suspect]
     Indication: ROTATOR CUFF SYNDROME
     Dosage: 1 to 2 inches
     Route: 061
     Dates: start: 2011
  2. PENNSAID [Concomitant]
     Indication: ROTATOR CUFF SYNDROME
  3. ADVIL//IBUPROFEN [Concomitant]
     Indication: PAIN
  4. DRUG THERAPY NOS [Concomitant]

REACTIONS (6)
  - Lung cancer metastatic [Not Recovered/Not Resolved]
  - Hypertrophic osteoarthropathy [Not Recovered/Not Resolved]
  - Off label use [Unknown]
  - Therapeutic response unexpected [Unknown]
  - Wrong technique in drug usage process [Unknown]
  - Drug administered at inappropriate site [Unknown]
